FAERS Safety Report 8525209 (Version 8)
Quarter: 2015Q3

REPORT INFORMATION
  Report Type: Report from Study
  Country: CA (occurrence: CA)
  Receive Date: 20120423
  Receipt Date: 20150819
  Transmission Date: 20151125
  Serious: Yes (Other)
  Sender: FDA-Public Use
  Company Number: PHHY2012CA033528

PATIENT
  Age: 62 Year
  Sex: Female

DRUGS (1)
  1. CLOZARIL [Suspect]
     Active Substance: CLOZAPINE
     Indication: PRODUCT USED FOR UNKNOWN INDICATION
     Route: 048
     Dates: start: 20130503, end: 20150401

REACTIONS (8)
  - Drug withdrawal syndrome [Unknown]
  - Vomiting [Unknown]
  - Neoplasm malignant [Unknown]
  - White blood cell count decreased [Not Recovered/Not Resolved]
  - Nausea [Unknown]
  - Depression [Unknown]
  - Neutrophil count decreased [Not Recovered/Not Resolved]
  - Diarrhoea [Unknown]

NARRATIVE: CASE EVENT DATE: 20150223
